FAERS Safety Report 6520997-3 (Version None)
Quarter: 2009Q4

REPORT INFORMATION
  Report Type: 
  Country: None (occurrence: None)
  Receive Date: 20091229
  Receipt Date: 20091217
  Transmission Date: 20100525
  Serious: Yes (Other)
  Sender: FDA-Public Use
  Company Number: GR-PFIZER INC-2009311338

PATIENT
  Sex: Male

DRUGS (2)
  1. DOSTINEX [Suspect]
     Indication: INFERTILITY
     Dosage: 0.25 MG, WEEKLY
     Route: 064
     Dates: start: 20081201, end: 20090901
  2. DUPHASTON [Suspect]
     Indication: INFERTILITY
     Dosage: 10 MG 2X/DAY (FROM 16TH TO 25TH DAY OF MENSTRUAL CYCLE)
     Route: 064
     Dates: start: 20081201, end: 20090901

REACTIONS (2)
  - DRUG EXPOSURE DURING PREGNANCY [None]
  - HYDRONEPHROSIS [None]
